FAERS Safety Report 17850135 (Version 1)
Quarter: 2020Q2

REPORT INFORMATION
  Report Type: Spontaneous
  Country: US (occurrence: US)
  Receive Date: 20200602
  Receipt Date: 20200602
  Transmission Date: 20200714
  Serious: No
  Sender: FDA-Public Use
  Company Number: US-GUERBET-US-20190210

PATIENT
  Age: 64 Year
  Sex: Female

DRUGS (4)
  1. LIPIODOL [Suspect]
     Active Substance: ETHIODIZED OIL
     Indication: THERAPEUTIC EMBOLISATION
     Dosage: 2.2 ML OF ETHANOL-ETHIODOL EMULSION
     Route: 013
  2. NIFEDIPINE. [Concomitant]
     Active Substance: NIFEDIPINE
     Indication: PROPHYLAXIS
     Route: 042
  3. ALCOHOL. [Concomitant]
     Active Substance: ALCOHOL
     Indication: THERAPEUTIC EMBOLISATION
     Dosage: 2.2 ML OF ETHANOL-ETHIODOL EMULSION
     Route: 013
  4. NITROGYLCERIN [Concomitant]
     Indication: PROPHYLAXIS
     Route: 013

REACTIONS (2)
  - Product use in unapproved indication [Recovered/Resolved]
  - Post embolisation syndrome [Recovered/Resolved]
